FAERS Safety Report 17558276 (Version 1)
Quarter: 2020Q1

REPORT INFORMATION
  Report Type: Spontaneous
  Country: US (occurrence: US)
  Receive Date: 20200318
  Receipt Date: 20200318
  Transmission Date: 20200409
  Serious: Yes (Hospitalization)
  Sender: FDA-Public Use
  Company Number: US-PFM-2020-01009

PATIENT
  Sex: Male
  Weight: 8 kg

DRUGS (3)
  1. HEMANGEOL [Suspect]
     Active Substance: PROPRANOLOL HYDROCHLORIDE
     Indication: INFANTILE HAEMANGIOMA
     Dosage: 0.8 ML, BID (2/DAY)
     Route: 048
     Dates: start: 20191117
  2. HEMANGEOL [Suspect]
     Active Substance: PROPRANOLOL HYDROCHLORIDE
     Dosage: 1.9 ML, BID (2/DAY) WITH FOOD
     Route: 048
  3. HEMANGEOL [Suspect]
     Active Substance: PROPRANOLOL HYDROCHLORIDE
     Dosage: 1.6 ML, BID (2/DAY)
     Route: 048

REACTIONS (3)
  - Respiratory syncytial virus infection [Unknown]
  - Dyspnoea [Unknown]
  - Insomnia [Recovering/Resolving]
